FAERS Safety Report 4850522-4 (Version None)
Quarter: 2005Q4

REPORT INFORMATION
  Report Type: 
  Country: None (occurrence: None)
  Receive Date: 20051208
  Receipt Date: 20051130
  Transmission Date: 20060501
  Serious: Yes (Hospitalization)
  Sender: FDA-Public Use
  Company Number: 2005095758

PATIENT
  Age: 79 Year
  Sex: Female

DRUGS (6)
  1. LIPITOR [Suspect]
     Indication: HYPERCHOLESTEROLAEMIA
     Dosage: 10 MG (DAILY), ORAL
     Route: 048
     Dates: start: 20030221
  2. FAMOTIDINE [Concomitant]
  3. AMLODIPINE [Concomitant]
  4. METFORMIN HYDROCHLORIDE [Concomitant]
  5. DEPAS (ETIZOLAM) [Concomitant]
  6. LANSOPRAZOLE [Concomitant]

REACTIONS (2)
  - LIVER DISORDER [None]
  - LIVER FUNCTION TEST ABNORMAL [None]
